FAERS Safety Report 6854506-6 (Version None)
Quarter: 2010Q3

REPORT INFORMATION
  Report Type: 
  Country: None (occurrence: None)
  Receive Date: 20100717
  Receipt Date: 20080109
  Transmission Date: 20110219
  Serious: No
  Sender: FDA-Public Use
  Company Number: US-PFIZER INC-2008002498

PATIENT
  Sex: Female
  Weight: 78.2 kg

DRUGS (12)
  1. CHANTIX [Suspect]
     Dates: start: 20071001, end: 20071201
  2. ENALAPRIL MALEATE [Concomitant]
  3. PROTONIX [Concomitant]
  4. CHLORPHENIRAMINE MALEATE [Concomitant]
  5. GLIPIZIDE [Concomitant]
  6. BACLOFEN [Concomitant]
  7. ALPRAZOLAM [Concomitant]
  8. ISOSORBIDE [Concomitant]
  9. ZETIA [Concomitant]
  10. OXYCODONE HCL [Concomitant]
  11. NOVOLOG [Concomitant]
  12. ALL OTHER THERAPEUTIC PRODUCTS [Concomitant]

REACTIONS (5)
  - CONSTIPATION [None]
  - DRUG INEFFECTIVE [None]
  - FLATULENCE [None]
  - NAUSEA [None]
  - SLEEP DISORDER [None]
